FAERS Safety Report 26147121 (Version 1)
Quarter: 2025Q4

REPORT INFORMATION
  Report Type: Spontaneous
  Country: EU (occurrence: EU)
  Receive Date: 20251211
  Receipt Date: 20251211
  Transmission Date: 20260117
  Serious: Yes (Hospitalization)
  Sender: NOVARTIS
  Company Number: None

PATIENT
  Age: 34 Year
  Sex: Female
  Weight: 54 kg

DRUGS (1)
  1. COSENTYX [Suspect]
     Active Substance: SECUKINUMAB
     Indication: Psoriasis
     Dosage: UNK, (150MG/MOIS DU 30/06/2024 AU 30/11/2025, PUIS 300 MG/MOIS, PUIS 300MG/2 SEMAINES ? PARTIR DE JA
     Route: 042
     Dates: start: 20240630, end: 20251105

REACTIONS (2)
  - Pericarditis [Not Recovered/Not Resolved]
  - Pulmonary embolism [Recovered/Resolved]

NARRATIVE: CASE EVENT DATE: 20250601
